FAERS Safety Report 5959947-7 (Version None)
Quarter: 2008Q4

REPORT INFORMATION
  Report Type: 
  Country: None (occurrence: None)
  Receive Date: 20081112
  Receipt Date: 20080610
  Transmission Date: 20090506
  Serious: Yes (Other)
  Sender: FDA-Public Use
  Company Number: US-JNJFOC-20080603653

PATIENT
  Sex: Male

DRUGS (4)
  1. MOTRIN [Suspect]
     Indication: ARTHRITIS
     Dosage: 800 MG
  2. PERCOCET [Concomitant]
  3. NAPROXEN [Concomitant]
  4. IBUPROFEN [Concomitant]

REACTIONS (3)
  - DRUG EFFECT DECREASED [None]
  - HYPERTENSION [None]
  - WEIGHT DECREASED [None]
